FAERS Safety Report 7226696-7 (Version None)
Quarter: 2011Q1

REPORT INFORMATION
  Report Type: 
  Country: None (occurrence: None)
  Receive Date: 20110114
  Receipt Date: 20110111
  Transmission Date: 20110831
  Serious: Yes (Hospitalization)
  Sender: FDA-Public Use
  Company Number: US-BRISTOL-MYERS SQUIBB COMPANY-15482060

PATIENT
  Age: 67 Year
  Sex: Male
  Weight: 100 kg

DRUGS (3)
  1. TAXOL [Suspect]
     Indication: OESOPHAGEAL ADENOCARCINOMA
     Dosage: LAST DOSE ON 27DEC2010.DRUG WAS HELD ON DAY 15 +RESUMED ON DAY 22 50 MG/M2 DAY 1,8,15,22,36
     Dates: start: 20101122
  2. CISPLATIN [Suspect]
     Indication: OESOPHAGEAL ADENOCARCINOMA
     Dosage: LAST DOSE:27DEC2010.DRUG HELD ON DAY 15+ RESUMED WITH DOSE REDUCED 25MG/M2 DAY 1,8,15,22,29,36
     Route: 042
     Dates: start: 20101122
  3. ERBITUX [Suspect]
     Indication: OESOPHAGEAL ADENOCARCINOMA
     Dosage: LAST DOSE ON 27DEC2010.NO OF INFUSIONS:6 400 MG/M2 DAY 1,250MG/M2 DAY 1,8,15,22,29,36
     Route: 042
     Dates: start: 20101122

REACTIONS (7)
  - HYPOMAGNESAEMIA [None]
  - LYMPHOCYTE COUNT DECREASED [None]
  - NEUTROPHIL COUNT DECREASED [None]
  - DEVICE RELATED INFECTION [None]
  - ANAEMIA [None]
  - HYPOALBUMINAEMIA [None]
  - WHITE BLOOD CELL COUNT DECREASED [None]
